FAERS Safety Report 6364393-0 (Version None)
Quarter: 2009Q3

REPORT INFORMATION
  Report Type: 
  Country: None (occurrence: None)
  Receive Date: 20090919
  Receipt Date: 20090720
  Transmission Date: 20100115
  Serious: No
  Sender: FDA-Public Use
  Company Number: US-ABBOTT-09P-163-0587087-00

PATIENT
  Sex: Female
  Weight: 63.56 kg

DRUGS (1)
  1. HUMIRA [Suspect]
     Indication: ALPHA TUMOUR NECROSIS FACTOR INCREASED
     Route: 058
     Dates: start: 20090717

REACTIONS (2)
  - HEARING IMPAIRED [None]
  - SYNCOPE [None]
